FAERS Safety Report 25040626 (Version 1)
Quarter: 2025Q1

REPORT INFORMATION
  Report Type: Spontaneous
  Country: CN (occurrence: CN)
  Receive Date: 20250305
  Receipt Date: 20250305
  Transmission Date: 20250408
  Serious: Yes (Hospitalization)
  Sender: ALEXION PHARMACEUTICALS
  Company Number: CN-SA-2025SA058006

PATIENT
  Age: 3 Month

DRUGS (1)
  1. NIRSEVIMAB [Suspect]
     Active Substance: NIRSEVIMAB
     Route: 065

REACTIONS (4)
  - Respiratory syncytial virus infection [Unknown]
  - Cough [Recovered/Resolved]
  - Productive cough [Unknown]
  - Bronchitis [Unknown]
